FAERS Safety Report 7980734-2 (Version None)
Quarter: 2011Q4

REPORT INFORMATION
  Report Type: 
  Country: None (occurrence: None)
  Receive Date: 20111214
  Receipt Date: 20111205
  Transmission Date: 20120403
  Serious: Yes (Hospitalization)
  Sender: FDA-Public Use
  Company Number: JP-ASTRAZENECA-2011SE70048

PATIENT
  Age: 40 Year
  Sex: Male

DRUGS (2)
  1. UROLEAP [Suspect]
     Route: 048
     Dates: start: 20111111, end: 20111111
  2. CRESTOR [Suspect]
     Route: 048
     Dates: start: 20111110, end: 20111111

REACTIONS (4)
  - ASPARTATE AMINOTRANSFERASE INCREASED [None]
  - RENAL FAILURE ACUTE [None]
  - LIVER FUNCTION TEST ABNORMAL [None]
  - ALANINE AMINOTRANSFERASE INCREASED [None]
